FAERS Safety Report 8450813-4 (Version None)
Quarter: 2012Q2

REPORT INFORMATION
  Report Type: 
  Country: None (occurrence: None)
  Receive Date: 20120620
  Receipt Date: 20120614
  Transmission Date: 20120825
  Serious: No
  Sender: FDA-Public Use
  Company Number: US-B.I. PHARMACEUTICALS,INC./RIDGEFIELD-2012-BP-13743BP

PATIENT
  Sex: Female

DRUGS (7)
  1. ASTHMANEX TWISTHALER [Concomitant]
     Indication: EMPHYSEMA
  2. SPIRIVA [Suspect]
     Dosage: 18 MCG
     Route: 048
  3. SPIRIVA [Suspect]
     Indication: ASTHMA
     Dosage: 18 MCG
     Route: 055
     Dates: start: 20120201
  4. PRILOSEC [Concomitant]
     Indication: DYSPEPSIA
     Dosage: 20 MG
     Route: 048
  5. REQUIP [Concomitant]
     Indication: RESTLESS LEGS SYNDROME
     Dosage: 4 MG
     Route: 048
  6. ALBUTEROL [Concomitant]
     Indication: ASTHMA
  7. ASTHMANEX TWISTHALER [Concomitant]
     Indication: ASTHMA
     Dosage: 220 MCG
     Route: 055

REACTIONS (1)
  - INCORRECT ROUTE OF DRUG ADMINISTRATION [None]
